FAERS Safety Report 22214533 (Version 1)
Quarter: 2023Q2

REPORT INFORMATION
  Report Type: Spontaneous
  Country: US (occurrence: US)
  Receive Date: 20230415
  Receipt Date: 20230415
  Transmission Date: 20230721
  Serious: No
  Sender: FDA-Public Use
  Company Number: US-drreddys-SPO/USA/23/0162618

PATIENT
  Age: 35 Year
  Sex: Female

DRUGS (2)
  1. ACCUTANE [Suspect]
     Active Substance: ISOTRETINOIN
     Indication: Acne
     Dosage: RMA ISSUE DATE: 24 AUGUST 2022 09:30:37 AM
  2. ACCUTANE [Suspect]
     Active Substance: ISOTRETINOIN
     Dosage: RMA ISSUE DATE: 28 SEPTEMBER 2022 10:36:32 AM, 02 NOVEMBER 2022 09:31:28 AM, 06 DECEMBER 2022 05:21:

REACTIONS (1)
  - Blood triglycerides increased [Unknown]
